FAERS Safety Report 5276959-X (Version None)
Quarter: 2007Q1

REPORT INFORMATION
  Report Type: 
  Country: None (occurrence: None)
  Receive Date: 20070327
  Receipt Date: 20070314
  Transmission Date: 20070707
  Serious: Yes (Hospitalization, Other)
  Sender: FDA-Public Use
  Company Number: US-AMGEN-US214405

PATIENT
  Sex: Male
  Weight: 70.9 kg

DRUGS (9)
  1. ARANESP [Suspect]
     Indication: ANAEMIA OF MALIGNANT DISEASE
     Dates: end: 20070305
  2. FLUCONAZOLE [Concomitant]
  3. DAPSONE [Concomitant]
  4. VALTREX [Concomitant]
  5. BLOOD CELLS, PACKED HUMAN [Concomitant]
     Dates: start: 20060811, end: 20070308
  6. PLATELETS [Concomitant]
     Dates: start: 20061023, end: 20061117
  7. ZOMETA [Concomitant]
     Dates: start: 20061103
  8. ELAVIL [Concomitant]
  9. NEUPOGEN [Concomitant]
     Dates: start: 20061030

REACTIONS (7)
  - BONE MARROW FAILURE [None]
  - ENTEROCOLITIS [None]
  - ESCHERICHIA BACTERAEMIA [None]
  - FEBRILE NEUTROPENIA [None]
  - MULTIPLE MYELOMA [None]
  - NEUROPATHY [None]
  - THERAPEUTIC RESPONSE DECREASED [None]
